FAERS Safety Report 4424691-4 (Version None)
Quarter: 2004Q3

REPORT INFORMATION
  Report Type: 
  Country: None (occurrence: None)
  Receive Date: 20040719
  Receipt Date: 20040419
  Transmission Date: 20050211
  Serious: Yes (Hospitalization)
  Sender: FDA-Public Use
  Company Number: 196447

PATIENT
  Age: 52 Year
  Sex: Female
  Weight: 72.5755 kg

DRUGS (9)
  1. AVONEX [Suspect]
     Indication: MULTIPLE SCLEROSIS
     Dosage: 30 MCG QW IM
     Route: 030
     Dates: start: 20040320
  2. PROVIGIL [Concomitant]
  3. OXYBUTYNIN CHLORIDE [Concomitant]
  4. NEURONTIN [Concomitant]
  5. LIPITOR [Concomitant]
  6. PROZAC [Concomitant]
  7. TRAZODONE [Concomitant]
  8. XANAX [Concomitant]
  9. METOPROLOL [Concomitant]

REACTIONS (4)
  - ARRHYTHMIA [None]
  - CONFUSIONAL STATE [None]
  - FATIGUE [None]
  - INFLUENZA LIKE ILLNESS [None]
